FAERS Safety Report 7595195-5 (Version None)
Quarter: 2011Q3

REPORT INFORMATION
  Report Type: 
  Country: None (occurrence: None)
  Receive Date: 20110707
  Receipt Date: 20110705
  Transmission Date: 20111222
  Serious: Yes (Death)
  Sender: FDA-Public Use
  Company Number: AU-PFIZER INC-2011150205

PATIENT
  Age: 73 Year
  Sex: Male

DRUGS (2)
  1. CADUET [Suspect]
     Indication: HYPERTENSION
     Dosage: [AMLODIPINE BESYLATE 5 MG/ ATORVASTATIN CALCIUM 40 MG]
  2. CADUET [Suspect]
     Indication: BLOOD CHOLESTEROL INCREASED

REACTIONS (2)
  - FALL [None]
  - HEAD INJURY [None]
